FAERS Safety Report 21468499 (Version 2)
Quarter: 2023Q2

REPORT INFORMATION
  Report Type: Report from Study
  Country: US (occurrence: US)
  Receive Date: 20221017
  Receipt Date: 20230414
  Transmission Date: 20230722
  Serious: Yes (Other)
  Sender: FDA-Public Use
  Company Number: US-ABBVIE-4147594

PATIENT
  Sex: Male

DRUGS (2)
  1. IMBRUVICA [Suspect]
     Active Substance: IBRUTINIB
     Indication: Chronic lymphocytic leukaemia
     Dosage: FORGET 2-3  PILLS IN A MONTH MAYBE
     Route: 048
     Dates: start: 202107
  2. IMBRUVICA [Suspect]
     Active Substance: IBRUTINIB
     Indication: Chronic lymphocytic leukaemia
     Route: 048
     Dates: start: 20210709

REACTIONS (8)
  - Malignant melanoma [Unknown]
  - Flatulence [Unknown]
  - Skin laceration [Unknown]
  - Asthenia [Unknown]
  - Asthenia [Unknown]
  - Prostatic disorder [Unknown]
  - Contusion [Unknown]
  - Haemorrhage [Unknown]
